FAERS Safety Report 13088040 (Version 1)
Quarter: 2017Q1

REPORT INFORMATION
  Report Type: Spontaneous
  Country: US (occurrence: US)
  Receive Date: 20170105
  Receipt Date: 20170105
  Transmission Date: 20170428
  Serious: No
  Sender: FDA-Public Use
  Company Number: US-ASTRAZENECA-2016SF38543

PATIENT
  Sex: Male
  Weight: 71.7 kg

DRUGS (8)
  1. ESCITALOPRIM [Concomitant]
     Indication: DEPRESSION
     Route: 048
     Dates: start: 2008
  2. SEROQUEL XR [Suspect]
     Active Substance: QUETIAPINE FUMARATE
     Indication: SCHIZOPHRENIA
     Route: 048
     Dates: start: 2006
  3. SEROQUEL XR [Suspect]
     Active Substance: QUETIAPINE FUMARATE
     Indication: SCHIZOPHRENIA
     Route: 048
  4. HALOPERIDOL. [Concomitant]
     Active Substance: HALOPERIDOL
     Indication: DEPRESSION
     Route: 048
     Dates: start: 2011
  5. ESCITALOPRIM [Concomitant]
     Indication: MENTAL DISORDER
     Route: 048
     Dates: start: 2008
  6. SEROQUEL XR [Suspect]
     Active Substance: QUETIAPINE FUMARATE
     Indication: SCHIZOAFFECTIVE DISORDER
     Route: 048
     Dates: start: 2006
  7. SEROQUEL XR [Suspect]
     Active Substance: QUETIAPINE FUMARATE
     Indication: SCHIZOAFFECTIVE DISORDER
     Route: 048
  8. MIRTAZAPINE. [Concomitant]
     Active Substance: MIRTAZAPINE
     Indication: DEPRESSION
     Route: 048
     Dates: start: 2006

REACTIONS (6)
  - Depression [Unknown]
  - Intentional product misuse [Unknown]
  - Vomiting [Unknown]
  - Product quality issue [Unknown]
  - Drug dose omission [Unknown]
  - Schizoaffective disorder [Unknown]
